FAERS Safety Report 11330078 (Version 1)
Quarter: 2015Q3

REPORT INFORMATION
  Report Type: Spontaneous
  Country: FR (occurrence: FR)
  Receive Date: 20150803
  Receipt Date: 20150803
  Transmission Date: 20151125
  Serious: Yes (Life-Threatening)
  Sender: FDA-Public Use
  Company Number: FR-PFIZER INC-2015250846

PATIENT
  Age: 82 Year
  Sex: Female

DRUGS (9)
  1. ZITHROMAX [Suspect]
     Active Substance: AZITHROMYCIN DIHYDRATE
     Indication: PNEUMONIA
     Dosage: 250 MG, 1X/DAY
     Route: 048
     Dates: start: 20150613, end: 20150615
  2. CEFTRIAXONE MYLAN [Interacting]
     Active Substance: CEFTRIAXONE
     Indication: PNEUMONIA
     Dosage: 1 DF, 2X/DAY
     Route: 041
     Dates: start: 20150613, end: 20150615
  3. LOXEN /00639802/ [Concomitant]
     Active Substance: NICARDIPINE
  4. DIAMICRON [Concomitant]
     Active Substance: GLICLAZIDE
  5. PREVISCAN [Interacting]
     Active Substance: FLUINDIONE
     Indication: ATRIAL FIBRILLATION
     Dosage: 20 MG, SCORED TABLET: ? TABLET ALTERNATING WITH ? TABLET EVERY TWO DAYS
     Route: 048
     Dates: start: 201501, end: 20150614
  6. KARDEGIC [Concomitant]
     Active Substance: ASPIRIN LYSINE
  7. DIFFU K [Concomitant]
     Active Substance: POTASSIUM CHLORIDE
  8. AUGMENTIN [Concomitant]
     Active Substance: AMOXICILLIN\CLAVULANATE POTASSIUM
     Indication: PNEUMONIA
     Dosage: UNK
     Dates: start: 20150610, end: 20150613
  9. COVERSYL /00790702/ [Concomitant]
     Active Substance: PERINDOPRIL

REACTIONS (3)
  - Drug interaction [Not Recovered/Not Resolved]
  - Cerebral haematoma [Not Recovered/Not Resolved]
  - International normalised ratio increased [Recovered/Resolved]

NARRATIVE: CASE EVENT DATE: 20150614
